FAERS Safety Report 8324089 (Version 2)
Quarter: 2013Q1

REPORT INFORMATION
  Report Type: Spontaneous
  Country: US (occurrence: US)
  Receive Date: 20120105
  Receipt Date: 20130103
  Transmission Date: 20140127
  Serious: No
  Sender: FDA-Public Use
  Company Number: US-ABBOTT-11P-163-0869302-00

PATIENT
  Age: 64 Year
  Sex: Female
  Weight: 55.84 kg

DRUGS (5)
  1. SYNTHROID 88 MCG [Suspect]
     Indication: HYPOTHYROIDISM
     Dates: start: 201104
  2. SYNTHROID 88 MCG [Suspect]
  3. SYNTHROID 88 MCG [Suspect]
     Dates: start: 2009
  4. SYNTHROID 88 MCG [Suspect]
     Dates: end: 201104
  5. LOSARTAN [Concomitant]
     Indication: BLOOD PRESSURE

REACTIONS (9)
  - Feeling abnormal [Unknown]
  - Blood pressure increased [Unknown]
  - Palpitations [Unknown]
  - Insomnia [Unknown]
  - Anxiety [Unknown]
  - Product tampering [Unknown]
  - Product contamination [Not Recovered/Not Resolved]
  - Drug ineffective [Unknown]
  - Heart rate increased [Not Recovered/Not Resolved]
